FAERS Safety Report 17806173 (Version 1)
Quarter: 2020Q2

REPORT INFORMATION
  Report Type: Report from Study
  Country: US (occurrence: US)
  Receive Date: 20200520
  Receipt Date: 20200520
  Transmission Date: 20200714
  Serious: Yes (Hospitalization)
  Sender: FDA-Public Use
  Company Number: US-EMD SERONO-9141302

PATIENT
  Age: 71 Year
  Sex: Female

DRUGS (1)
  1. REBIF [Suspect]
     Active Substance: INTERFERON BETA-1A
     Indication: MULTIPLE SCLEROSIS
     Route: 058
     Dates: start: 20170822

REACTIONS (4)
  - Depression [Not Recovered/Not Resolved]
  - Multiple sclerosis relapse [Unknown]
  - Hospitalisation [Unknown]
  - Stress [Unknown]

NARRATIVE: CASE EVENT DATE: 201910
